FAERS Safety Report 10224457 (Version 1)
Quarter: 2014Q2

REPORT INFORMATION
  Report Type: Spontaneous
  Country: RU (occurrence: RU)
  Receive Date: 20140609
  Receipt Date: 20140609
  Transmission Date: 20141212
  Serious: Yes (Life-Threatening, Other)
  Sender: FDA-Public Use
  Company Number: RU-ASTRAZENECA-2014SE38890

PATIENT
  Age: 73 Year
  Sex: Female

DRUGS (2)
  1. NAROPIN [Suspect]
     Route: 042
  2. CEFTRIAXON [Concomitant]

REACTIONS (3)
  - Skin discolouration [Recovering/Resolving]
  - Dyspnoea [Recovering/Resolving]
  - Vomiting [Recovering/Resolving]
